FAERS Safety Report 4736337-6 (Version None)
Quarter: 2005Q3

REPORT INFORMATION
  Report Type: 
  Country: None (occurrence: None)
  Receive Date: 20050808
  Receipt Date: 20050512
  Transmission Date: 20060218
  Serious: Yes (Death)
  Sender: FDA-Public Use
  Company Number: 2005UW07441

PATIENT
  Age: 42 Year
  Sex: Male

DRUGS (1)
  1. SEROQUEL [Suspect]
     Dosage: 200 MG AM, 400 MG PM
     Route: 048

REACTIONS (2)
  - CARDIOVASCULAR DISORDER [None]
  - DEATH [None]
